FAERS Safety Report 11925310 (Version 21)
Quarter: 2017Q4

REPORT INFORMATION
  Report Type: Spontaneous
  Country: KR (occurrence: KR)
  Receive Date: 20160118
  Receipt Date: 20171122
  Transmission Date: 20180320
  Serious: Yes (Hospitalization, Other)
  Sender: FDA-Public Use
  Company Number: KR-TAKEDA-2016MPI000239

PATIENT
  Age: 72 Year
  Sex: Male

DRUGS (96)
  1. VELCADE [Suspect]
     Active Substance: BORTEZOMIB
     Dosage: 2.2 MG, UNK
     Route: 058
     Dates: start: 20150730, end: 20150730
  2. FUROSEMIDE. [Concomitant]
     Active Substance: FUROSEMIDE
     Dosage: 180 MG, UNK
     Route: 042
     Dates: start: 20150810, end: 20150810
  3. SALBUTAMOL SULFATE [Concomitant]
     Active Substance: ALBUTEROL SULFATE
     Indication: EMPHYSEMA
     Dosage: UNK, QID
     Route: 045
     Dates: start: 20150701, end: 20150810
  4. CEFEPIME [Concomitant]
     Active Substance: CEFEPIME HYDROCHLORIDE
     Dosage: 2 G, BID
     Route: 042
     Dates: start: 20150811, end: 20150812
  5. PROPACETAMOL HCL [Concomitant]
     Dosage: 1 G, UNK
     Route: 042
     Dates: start: 20150803, end: 20150803
  6. VITAMIN K1 [Concomitant]
     Active Substance: PHYTONADIONE
     Indication: RASH
     Dosage: 10 MG, UNK
     Route: 042
     Dates: start: 20150710, end: 20150710
  7. FILGRASTIM [Concomitant]
     Active Substance: FILGRASTIM
     Dosage: 300 MG, QD
     Route: 042
     Dates: start: 20150717, end: 20150717
  8. HYDROCORTISONE SODIUM SUCCINATE [Concomitant]
     Active Substance: HYDROCORTISONE SODIUM SUCCINATE
     Indication: RASH
     Dosage: 100 MG, QD
     Route: 042
     Dates: start: 20150710, end: 20150710
  9. SUCRALFATE. [Concomitant]
     Active Substance: SUCRALFATE
     Indication: GASTROINTESTINAL DISORDER THERAPY
     Dosage: 15 ML, QID
     Route: 048
     Dates: start: 20150727, end: 20150809
  10. PANTOPRAZOLE [Concomitant]
     Active Substance: PANTOPRAZOLE
     Dosage: 200 MG, UNK
     Route: 042
     Dates: start: 20150811, end: 20150818
  11. SODIUM BICARBONATE. [Concomitant]
     Active Substance: SODIUM BICARBONATE
     Dosage: 440 ML, UNK
     Route: 042
     Dates: start: 20150810, end: 20150810
  12. POTASSIUM CHLORIDE. [Concomitant]
     Active Substance: POTASSIUM CHLORIDE
     Indication: HYPOKALAEMIA
     Dosage: 600 ?G, TID
     Route: 048
     Dates: start: 20150805, end: 20150806
  13. ACYCLOVIR                          /00587301/ [Concomitant]
     Active Substance: ACYCLOVIR
     Indication: INFECTION PROPHYLAXIS
     Dosage: 500 MG, QD
     Route: 042
     Dates: start: 20150811, end: 20150820
  14. PREDNISONE. [Suspect]
     Active Substance: PREDNISONE
     Indication: PLASMA CELL MYELOMA
     Dosage: 105 MG, TID
     Route: 048
     Dates: start: 20150727, end: 20150730
  15. ZOLPIDEM TARTRATE. [Concomitant]
     Active Substance: ZOLPIDEM TARTRATE
     Dosage: UNK
     Route: 048
     Dates: start: 20150715, end: 20150717
  16. VITAMIN K1 [Concomitant]
     Active Substance: PHYTONADIONE
     Dosage: 10 MG, TID
     Route: 042
     Dates: start: 20150813, end: 20150813
  17. METHYLPREDNISOLONE. [Concomitant]
     Active Substance: METHYLPREDNISOLONE
     Dosage: UNK
     Route: 061
     Dates: start: 20150710, end: 20150717
  18. MAGNESIUM SULFATE. [Concomitant]
     Active Substance: MAGNESIUM SULFATE
     Dosage: 60 ML, UNK
     Route: 042
     Dates: start: 20150724, end: 20150724
  19. PREPENEM [Concomitant]
     Indication: PROPHYLAXIS
     Dosage: 500 MG, QID
     Route: 042
     Dates: start: 20150711, end: 20150716
  20. ACYCLOVIR                          /00587301/ [Concomitant]
     Active Substance: ACYCLOVIR
     Indication: INFECTION PROPHYLAXIS
     Dosage: 500 MG, BID
     Route: 048
     Dates: start: 20150727, end: 20150809
  21. SODIUM BICARBONATE. [Concomitant]
     Active Substance: SODIUM BICARBONATE
     Indication: ALKALOSIS
     Dosage: 40 ML, BID
     Route: 042
     Dates: start: 20150724, end: 20150726
  22. SODIUM BICARBONATE. [Concomitant]
     Active Substance: SODIUM BICARBONATE
     Dosage: 40 ML, UNK
     Route: 042
     Dates: start: 20150811, end: 20150818
  23. TEICOPLANIN [Concomitant]
     Active Substance: TEICOPLANIN
     Indication: SEPTIC SHOCK
     Dosage: 400 MG, UNK
     Route: 042
     Dates: start: 20150813, end: 20150820
  24. FUROSEMIDE. [Concomitant]
     Active Substance: FUROSEMIDE
     Dosage: 160 MG, UNK
     Route: 042
     Dates: start: 20150809, end: 20150809
  25. POLYCARBOPHIL CALCIUM [Concomitant]
     Active Substance: CALCIUM POLYCARBOPHIL
     Indication: CONSTIPATION
     Dosage: UNK, TID
     Route: 048
     Dates: start: 20150709, end: 20150809
  26. ZOLPIDEM TARTRATE. [Concomitant]
     Active Substance: ZOLPIDEM TARTRATE
     Indication: INSOMNIA
     Dosage: UNK, QD
     Route: 048
     Dates: start: 20150709, end: 20150709
  27. PIPRINHYDRINATE [Concomitant]
     Dosage: 3 MG, UNK
     Route: 042
     Dates: start: 20150729, end: 20150729
  28. FILGRASTIM [Concomitant]
     Active Substance: FILGRASTIM
     Dosage: 300 MG, QD
     Route: 042
     Dates: start: 20150715, end: 20150716
  29. DESOXYMETHASONE [Concomitant]
     Indication: RASH
     Dosage: UNK
     Route: 061
     Dates: start: 20150710, end: 20150717
  30. RANITIDINE. [Concomitant]
     Active Substance: RANITIDINE
     Indication: GASTROINTESTINAL DISORDER THERAPY
     Dosage: 150 MG, BID
     Route: 048
     Dates: start: 20150727, end: 20150809
  31. SODIUM BICARBONATE. [Concomitant]
     Active Substance: SODIUM BICARBONATE
     Dosage: 440 ML, UNK
     Route: 042
     Dates: start: 20150808, end: 20150808
  32. SODIUM BICARBONATE. [Concomitant]
     Active Substance: SODIUM BICARBONATE
     Dosage: 280 ML, UNK
     Route: 042
     Dates: start: 20150810, end: 20150810
  33. POTASSIUM CHLORIDE. [Concomitant]
     Active Substance: POTASSIUM CHLORIDE
     Dosage: 20 ML, TID
     Route: 042
     Dates: start: 20150812, end: 20150812
  34. POTASSIUM CHLORIDE. [Concomitant]
     Active Substance: POTASSIUM CHLORIDE
     Dosage: 40 UNK, UNK
     Route: 042
     Dates: start: 20150813, end: 20150813
  35. ALBUMIN [Concomitant]
     Active Substance: ALBUMIN HUMAN
     Indication: HYPOALBUMINAEMIA
     Dosage: 100 ML, QD
     Route: 042
     Dates: start: 20150811, end: 20150820
  36. FUROSEMIDE. [Concomitant]
     Active Substance: FUROSEMIDE
     Dosage: 20 MG, BID
     Route: 042
     Dates: start: 20150727, end: 20150804
  37. LEVOFLOXACIN. [Concomitant]
     Active Substance: LEVOFLOXACIN
     Indication: PROPHYLAXIS
     Dosage: UNK, QD
     Route: 048
     Dates: start: 20150708, end: 20150710
  38. FILGRASTIM [Concomitant]
     Active Substance: FILGRASTIM
     Dosage: 300 MG, UNK
     Route: 042
     Dates: start: 20150711, end: 20150711
  39. FILGRASTIM [Concomitant]
     Active Substance: FILGRASTIM
     Dosage: 300 MG, QD
     Route: 042
     Dates: start: 20150808, end: 20150820
  40. PREDNICARBATE. [Concomitant]
     Active Substance: PREDNICARBATE
     Indication: RASH
     Dosage: UNK
     Route: 061
     Dates: start: 20150710, end: 20150717
  41. BEPOTASTINE BESILATE [Concomitant]
     Active Substance: BEPOTASTINE BESILATE
     Indication: RASH
     Dosage: 10 MG, BID
     Route: 048
     Dates: start: 20150710, end: 20150809
  42. METHYLPREDNISOLONE. [Concomitant]
     Active Substance: METHYLPREDNISOLONE
     Indication: RASH
     Dosage: 8 MG, BID
     Route: 048
     Dates: start: 20150710, end: 20150714
  43. MAGNESIUM SULFATE. [Concomitant]
     Active Substance: MAGNESIUM SULFATE
     Indication: HYPOMAGNESAEMIA
     Dosage: 60 MG, UNK
     Route: 042
     Dates: start: 20150711, end: 20150711
  44. POTASSIUM CHLORIDE. [Concomitant]
     Active Substance: POTASSIUM CHLORIDE
     Indication: ELECTROLYTE IMBALANCE
     Dosage: 40 ML, UNK
     Route: 042
     Dates: start: 20150803, end: 20150803
  45. MIDAZOLAM [Concomitant]
     Active Substance: MIDAZOLAM HYDROCHLORIDE
     Indication: SEDATION
     Dosage: 105 MG, UNK
     Route: 042
     Dates: start: 20150810, end: 20150817
  46. NOREPINEPHRINE                     /00127502/ [Concomitant]
     Active Substance: NOREPINEPHRINE BITARTRATE
     Indication: HYPOTENSION
     Dosage: 16 MG, UNK
     Route: 042
     Dates: start: 20150810, end: 20150820
  47. QUETIAPINE                         /01270902/ [Concomitant]
     Active Substance: QUETIAPINE FUMARATE
     Indication: DELIRIUM
     Dosage: 12.5 G, UNK
     Route: 048
     Dates: start: 20150803, end: 20150804
  48. FUROSEMIDE. [Concomitant]
     Active Substance: FUROSEMIDE
     Dosage: 70 MG, UNK
     Route: 042
     Dates: start: 20150808, end: 20150808
  49. FUROSEMIDE. [Concomitant]
     Active Substance: FUROSEMIDE
     Dosage: 20 MG, UNK
     Route: 042
     Dates: start: 20150811, end: 20150811
  50. IPRATROPIUM BROMIDE. [Concomitant]
     Active Substance: IPRATROPIUM BROMIDE
     Indication: EMPHYSEMA
     Dosage: UNK, QID
     Route: 055
     Dates: start: 20150808, end: 20150810
  51. VITAMIN B COMPLEX [Concomitant]
     Active Substance: CYANOCOBALAMIN\DEXPANTHENOL\NIACINAMIDE\PYRIDOXINE HYDROCHLORIDE\RIBOFLAVIN 5^-PHOSPHATE SODIUM\THIAMINE HYDROCHLORIDE\VITAMIN B COMPLEX
     Indication: PROPHYLAXIS
     Dosage: UNK, QD
     Route: 042
     Dates: start: 20150702, end: 20150716
  52. PIPRINHYDRINATE [Concomitant]
     Indication: PREMEDICATION
     Dosage: 3 MG, UNK
     Route: 042
     Dates: start: 20150713, end: 20150714
  53. PIPRINHYDRINATE [Concomitant]
     Dosage: 3 MG, BID
     Route: 042
     Dates: start: 20150809, end: 20150810
  54. ALLOPURINOL. [Concomitant]
     Active Substance: ALLOPURINOL
     Indication: PROPHYLAXIS
     Dosage: 300 MG, QD
     Route: 048
     Dates: start: 20150724, end: 20150729
  55. ACYCLOVIR                          /00587301/ [Concomitant]
     Active Substance: ACYCLOVIR
     Dosage: 500 MG, UNK
     Route: 042
     Dates: start: 20150811, end: 20150820
  56. SODIUM BICARBONATE. [Concomitant]
     Active Substance: SODIUM BICARBONATE
     Dosage: 400 ML, UNK
     Route: 042
     Dates: start: 20150809, end: 20150809
  57. MULTIBIC [Concomitant]
     Indication: RENAL REPLACEMENT THERAPY
     Dosage: UNK
     Route: 042
     Dates: start: 20150810, end: 20150810
  58. VELCADE [Suspect]
     Active Substance: BORTEZOMIB
     Indication: PLASMA CELL MYELOMA
     Dosage: 2.2 MG, UNK
     Route: 058
     Dates: start: 20150727, end: 20150727
  59. VELCADE [Suspect]
     Active Substance: BORTEZOMIB
     Dosage: 2.2 MG, UNK
     Route: 058
     Dates: start: 20150803, end: 20150803
  60. FUROSEMIDE. [Concomitant]
     Active Substance: FUROSEMIDE
     Dosage: 20 MG, BID
     Route: 042
     Dates: start: 20150729, end: 20150805
  61. COZAAR PLUS [Concomitant]
     Active Substance: HYDROCHLOROTHIAZIDE\LOSARTAN POTASSIUM
     Indication: HYPERTENSION
     Dosage: UNK UNK, QD
     Route: 048
     Dates: start: 20100709, end: 20150809
  62. CEFEPIME [Concomitant]
     Active Substance: CEFEPIME HYDROCHLORIDE
     Indication: INFECTION PROPHYLAXIS
     Dosage: 2 G, UNK
     Route: 042
     Dates: start: 20150808, end: 20150811
  63. LEVOFLOXACIN. [Concomitant]
     Active Substance: LEVOFLOXACIN
     Indication: INFECTION PROPHYLAXIS
  64. PIPRINHYDRINATE [Concomitant]
     Indication: RASH
     Dosage: 3 MG, UNK
     Route: 042
     Dates: start: 20150710, end: 20150710
  65. FILGRASTIM [Concomitant]
     Active Substance: FILGRASTIM
     Dosage: 300 MG, QD
     Route: 042
     Dates: start: 20150805, end: 20150805
  66. MELOXICAM. [Concomitant]
     Active Substance: MELOXICAM
     Indication: PAIN PROPHYLAXIS
     Dosage: 7.5 MG, QD
     Route: 048
     Dates: start: 20150714, end: 20150809
  67. PANTOPRAZOLE [Concomitant]
     Active Substance: PANTOPRAZOLE
     Indication: GASTROINTESTINAL DISORDER THERAPY
     Dosage: 40 MG, UNK
     Route: 042
     Dates: start: 20150808, end: 20150809
  68. FUROSEMIDE. [Concomitant]
     Active Substance: FUROSEMIDE
     Indication: FLUID RETENTION
     Dosage: 20 MG, UNK
     Route: 042
     Dates: start: 20150725, end: 20150725
  69. FUROSEMIDE. [Concomitant]
     Active Substance: FUROSEMIDE
     Dosage: 20 MG, BID
     Route: 042
     Dates: start: 20150729, end: 20150729
  70. PROPACETAMOL HCL [Concomitant]
     Indication: PYREXIA
     Dosage: UNK, QD
     Route: 042
     Dates: start: 20150709, end: 20150709
  71. METHYLPREDNISOLONE ACEPONATE [Concomitant]
     Active Substance: METHYLPREDNISOLONE ACEPONATE
     Indication: RASH
     Dosage: UNK
     Route: 061
     Dates: start: 20150710, end: 20150717
  72. MAGNESIUM SULFATE. [Concomitant]
     Active Substance: MAGNESIUM SULFATE
     Dosage: 60 ML, UNK
     Route: 042
     Dates: start: 20150727, end: 20150727
  73. PETHIDINE HCL [Concomitant]
     Indication: BIOPSY BONE MARROW
     Dosage: 25 MG, QD
     Route: 042
     Dates: start: 20150713, end: 20150713
  74. AUGMENTIN [Concomitant]
     Active Substance: AMOXICILLIN\CLAVULANATE POTASSIUM
     Indication: INFECTION PROPHYLAXIS
     Dosage: UNK, TID
     Route: 048
     Dates: start: 20150717, end: 20150726
  75. POTASSIUM CHLORIDE. [Concomitant]
     Active Substance: POTASSIUM CHLORIDE
     Dosage: 40 ML, TID
     Route: 042
     Dates: start: 20150811, end: 20150811
  76. FLUCONAZOLE. [Concomitant]
     Active Substance: FLUCONAZOLE
     Indication: INFECTION PROPHYLAXIS
     Dosage: 200 MG, QD
     Route: 042
     Dates: start: 20150811, end: 20150816
  77. VELCADE [Suspect]
     Active Substance: BORTEZOMIB
     Dosage: 2.2 MG, UNK
     Route: 058
     Dates: start: 20150806, end: 20150806
  78. MELPHALAN. [Suspect]
     Active Substance: MELPHALAN
     Indication: PLASMA CELL MYELOMA
     Dosage: 16 MG, TID
     Route: 048
     Dates: start: 20150727, end: 20150730
  79. FUROSEMIDE. [Concomitant]
     Active Substance: FUROSEMIDE
     Dosage: 40 MG, UNK
     Route: 042
     Dates: start: 20150812, end: 20150812
  80. IPRATROPIUM BROMIDE. [Concomitant]
     Active Substance: IPRATROPIUM BROMIDE
     Indication: DYSPNOEA
     Dosage: UNK, QID
     Route: 055
     Dates: start: 20150701, end: 20150716
  81. CEFEPIME [Concomitant]
     Active Substance: CEFEPIME HYDROCHLORIDE
     Indication: RENAL REPLACEMENT THERAPY
     Dosage: UNK UNK, TID
     Route: 042
     Dates: start: 20150702, end: 20150711
  82. CALCIUM ACETATE. [Concomitant]
     Active Substance: CALCIUM ACETATE
     Indication: HYPERPHOSPHATAEMIA
     Dosage: UNK, TID
     Route: 048
     Dates: start: 20150709, end: 20150711
  83. CALCIUM ACETATE. [Concomitant]
     Active Substance: CALCIUM ACETATE
     Indication: PROPHYLAXIS
     Dosage: UNK, TID
     Route: 048
     Dates: start: 20150712, end: 20150809
  84. LACTULOSE. [Concomitant]
     Active Substance: LACTULOSE
     Indication: CONSTIPATION
     Dosage: 15 ML, BID
     Route: 048
     Dates: start: 20150709, end: 20150709
  85. ZOLPIDEM TARTRATE. [Concomitant]
     Active Substance: ZOLPIDEM TARTRATE
     Dosage: UNK, QD
     Route: 048
     Dates: start: 20150710, end: 20150710
  86. ZOLPIDEM TARTRATE. [Concomitant]
     Active Substance: ZOLPIDEM TARTRATE
     Dosage: UNK
     Route: 048
     Dates: start: 20150711, end: 20150711
  87. VITAMIN K1 [Concomitant]
     Active Substance: PHYTONADIONE
     Dosage: 10 MG, QD
     Route: 042
     Dates: start: 20150810, end: 20150810
  88. FILGRASTIM [Concomitant]
     Active Substance: FILGRASTIM
     Indication: NEUTROPHIL COUNT DECREASED
     Dosage: 300 MG, UNK
     Route: 042
     Dates: start: 20150710, end: 20150710
  89. FILGRASTIM [Concomitant]
     Active Substance: FILGRASTIM
     Dosage: 300 MG, QD
     Route: 042
     Dates: start: 20150801, end: 20150801
  90. PAMIDRONATE [Concomitant]
     Active Substance: PAMIDRONATE DISODIUM
     Indication: PROPHYLAXIS
     Dosage: 90 MG, UNK
     Route: 042
     Dates: start: 20150727, end: 20150727
  91. CIPROFLOXACIN. [Concomitant]
     Active Substance: CIPROFLOXACIN
     Indication: INFECTION PROPHYLAXIS
     Dosage: 500 MG, BID
     Route: 048
     Dates: start: 20150727, end: 20150809
  92. FLUCONAZOLE. [Concomitant]
     Active Substance: FLUCONAZOLE
     Indication: INFECTION PROPHYLAXIS
     Dosage: 200 MG, QD
     Route: 048
     Dates: start: 20150727, end: 20150809
  93. TABACTAM [Concomitant]
     Indication: INFECTION PROPHYLAXIS
     Dosage: 4.5 G, TID
     Route: 042
     Dates: start: 20150803, end: 20150805
  94. SODIUM BICARBONATE. [Concomitant]
     Active Substance: SODIUM BICARBONATE
     Dosage: 40 ML, TID
     Route: 042
     Dates: start: 20150727, end: 20150805
  95. POTASSIUM CHLORIDE. [Concomitant]
     Active Substance: POTASSIUM CHLORIDE
     Dosage: 20 ML, TID
     Route: 042
     Dates: start: 20150814, end: 20150814
  96. SODIUM CHLORIDE. [Concomitant]
     Active Substance: SODIUM CHLORIDE
     Indication: HYPONATRAEMIA
     Dosage: 80 ML, UNK
     Route: 042
     Dates: start: 20150811, end: 20150811

REACTIONS (9)
  - Neutropenia [Unknown]
  - Septic shock [Unknown]
  - Activated partial thromboplastin time prolonged [Unknown]
  - Hypoalbuminaemia [Unknown]
  - Electrolyte imbalance [Unknown]
  - Hypokalaemia [Unknown]
  - Hyponatraemia [Unknown]
  - Tumour lysis syndrome [Not Recovered/Not Resolved]
  - Lactic acidosis [Unknown]

NARRATIVE: CASE EVENT DATE: 20150801
